FAERS Safety Report 9600048 (Version 1)
Quarter: 2013Q4

REPORT INFORMATION
  Report Type: Spontaneous
  Country: US (occurrence: US)
  Receive Date: 20131004
  Receipt Date: 20131004
  Transmission Date: 20140711
  Serious: No
  Sender: FDA-Public Use
  Company Number: US-AMGEN-USASP2013032511

PATIENT
  Age: 37 Year
  Sex: Female
  Weight: 88.44 kg

DRUGS (10)
  1. ENBREL [Suspect]
     Indication: RHEUMATOID ARTHRITIS
     Dosage: UNK
  2. VITAMIN D                          /00107901/ [Concomitant]
     Dosage: UNK
  3. VITAMIN B12                        /00056201/ [Concomitant]
     Dosage: UNK
  4. TYLENOL                            /00020001/ [Concomitant]
     Dosage: UNK
  5. MULTIVITAMINS, PLAIN [Concomitant]
     Dosage: UNK
  6. LORATADINE [Concomitant]
     Dosage: UNK
  7. IRON [Concomitant]
     Dosage: UNK
  8. ARAVA [Concomitant]
     Dosage: UNK
  9. DICLOFENAC [Concomitant]
     Dosage: UNK
  10. HALOG [Concomitant]
     Dosage: UNK

REACTIONS (1)
  - Injection site pain [Unknown]
